FAERS Safety Report 25506319 (Version 1)
Quarter: 2025Q3

REPORT INFORMATION
  Report Type: Spontaneous
  Country: US (occurrence: US)
  Receive Date: 20250702
  Receipt Date: 20250702
  Transmission Date: 20251021
  Serious: No
  Sender: ETHYPHARM
  Company Number: US-ETHYPHARM-2024000994

PATIENT
  Age: 29 Year
  Sex: Female

DRUGS (2)
  1. BUPRENORPHINE [Suspect]
     Active Substance: BUPRENORPHINE
     Indication: Drug use disorder
     Route: 060
  2. BUPRENORPHINE [Suspect]
     Active Substance: BUPRENORPHINE
     Indication: Drug use disorder
     Dosage: IN TWO INTAKES?DISCHARGE REGIMEN
     Route: 060

REACTIONS (3)
  - Maternal exposure during pregnancy [Unknown]
  - Off label use [Unknown]
  - Prescribed overdose [Unknown]
